FAERS Safety Report 8356250-5 (Version None)
Quarter: 2012Q2

REPORT INFORMATION
  Report Type: 
  Country: None (occurrence: None)
  Receive Date: 20120514
  Receipt Date: 20120420
  Transmission Date: 20120825
  Serious: Yes (Other)
  Sender: FDA-Public Use
  Company Number: US-US-EMD SERONO, INC.-7130927

PATIENT
  Sex: Female
  Weight: 26 kg

DRUGS (15)
  1. FISH OIL [Concomitant]
     Indication: PRODUCT USED FOR UNKNOWN INDICATION
  2. CHLOROPHYLL [Concomitant]
     Indication: PRODUCT USED FOR UNKNOWN INDICATION
  3. ALLEGRA [Concomitant]
     Indication: PRODUCT USED FOR UNKNOWN INDICATION
  4. SINGULAIR [Concomitant]
     Indication: PRODUCT USED FOR UNKNOWN INDICATION
  5. MULTI-VITAMIN [Concomitant]
     Indication: PRODUCT USED FOR UNKNOWN INDICATION
  6. VANICREAM [Concomitant]
     Indication: PRODUCT USED FOR UNKNOWN INDICATION
  7. FOCALIN [Concomitant]
     Indication: PRODUCT USED FOR UNKNOWN INDICATION
  8. ALIGN [Concomitant]
     Indication: PRODUCT USED FOR UNKNOWN INDICATION
  9. VITAMIN D [Concomitant]
     Indication: PRODUCT USED FOR UNKNOWN INDICATION
  10. BACTRIM [Concomitant]
     Indication: PRODUCT USED FOR UNKNOWN INDICATION
  11. TOBRADEX [Concomitant]
     Indication: PRODUCT USED FOR UNKNOWN INDICATION
  12. SAIZEN [Suspect]
     Indication: TURNER'S SYNDROME
  13. PREVACID [Concomitant]
     Indication: PRODUCT USED FOR UNKNOWN INDICATION
  14. PERIACTIN [Concomitant]
     Indication: PRODUCT USED FOR UNKNOWN INDICATION
  15. NASONEX [Concomitant]
     Indication: PRODUCT USED FOR UNKNOWN INDICATION

REACTIONS (7)
  - SINUSITIS [None]
  - VOMITING [None]
  - NAUSEA [None]
  - PNEUMONIA [None]
  - DYSPNOEA [None]
  - HEADACHE [None]
  - COUGH [None]
